FAERS Safety Report 13491989 (Version 3)
Quarter: 2019Q2

REPORT INFORMATION
  Report Type: Report from Study
  Country: US (occurrence: US)
  Receive Date: 20170427
  Receipt Date: 20190517
  Transmission Date: 20190711
  Serious: Yes (Disabling)
  Sender: FDA-Public Use
  Company Number: PHEH2017US011905

PATIENT
  Sex: Female

DRUGS (2)
  1. TASIGNA [Suspect]
     Active Substance: NILOTINIB
     Indication: PRODUCT USED FOR UNKNOWN INDICATION
     Route: 065
  2. TASIGNA [Suspect]
     Active Substance: NILOTINIB
     Dosage: 150 MG, QD
     Route: 065

REACTIONS (6)
  - Hot flush [Recovering/Resolving]
  - Dizziness [Unknown]
  - Dyspnoea [Recovering/Resolving]
  - Myalgia [Unknown]
  - Chest pain [Recovering/Resolving]
  - Malaise [Unknown]
